FAERS Safety Report 4475426-0 (Version None)
Quarter: 2004Q4

REPORT INFORMATION
  Report Type: 
  Country: None (occurrence: None)
  Receive Date: 20041014
  Receipt Date: 20041014
  Transmission Date: 20050328
  Serious: Yes (Hospitalization)
  Sender: FDA-Public Use
  Company Number: None

PATIENT
  Age: 35 Year
  Sex: Male

DRUGS (6)
  1. DIOVAN [Suspect]
     Indication: HYPERTENSION
     Dosage: 80 MG PO QD
     Route: 048
     Dates: start: 20031201, end: 20040401
  2. FLOMAX [Concomitant]
  3. ACCOLATE [Concomitant]
  4. ADVAIR DISKUS 100/50 [Concomitant]
  5. PREDNISONE [Concomitant]
  6. ALBUTEROL [Concomitant]

REACTIONS (1)
  - ALVEOLITIS ALLERGIC [None]
